FAERS Safety Report 8280778-X (Version None)
Quarter: 2012Q2

REPORT INFORMATION
  Report Type: 
  Country: None (occurrence: None)
  Receive Date: 20120412
  Receipt Date: 20120406
  Transmission Date: 20120825
  Serious: Yes (Other)
  Sender: FDA-Public Use
  Company Number: GR-ABBOTT-12P-066-0920248-00

PATIENT
  Age: 36 Year
  Sex: Female
  Weight: 95 kg

DRUGS (3)
  1. HUMIRA [Suspect]
     Indication: PSORIATIC ARTHROPATHY
     Dates: start: 20110701, end: 20120201
  2. HUMIRA [Suspect]
     Dates: start: 20120301
  3. FLUTICASONE PROPIONATE/SALMETEROL [Concomitant]
     Indication: SEASONAL ALLERGY

REACTIONS (1)
  - ABORTION SPONTANEOUS [None]
